FAERS Safety Report 6653221-1 (Version None)
Quarter: 2010Q1

REPORT INFORMATION
  Report Type: 
  Country: None (occurrence: None)
  Receive Date: 20100311
  Receipt Date: 20091207
  Transmission Date: 20100710
  Serious: No
  Sender: FDA-Public Use
  Company Number: 003285

PATIENT
  Age: 62 Year
  Sex: Female

DRUGS (1)
  1. ROTIGOTINE [Suspect]
     Indication: PARKINSON'S DISEASE
     Dosage: 6 MG QD TRANSDERMAL
     Route: 062
     Dates: start: 20070701, end: 20080401

REACTIONS (1)
  - DYSKINESIA [None]
